FAERS Safety Report 4608428-1 (Version None)
Quarter: 2005Q1

REPORT INFORMATION
  Report Type: 
  Country: None (occurrence: None)
  Receive Date: 20050315
  Receipt Date: 20050311
  Transmission Date: 20050727
  Serious: Yes (Hospitalization)
  Sender: FDA-Public Use
  Company Number: 200510510DE

PATIENT
  Age: 65 Year
  Sex: Female

DRUGS (6)
  1. TAXOTERE [Suspect]
     Indication: BREAST CANCER
     Route: 042
     Dates: start: 20050303, end: 20050303
  2. DOXORUBICIN [Suspect]
     Indication: BREAST CANCER
     Dates: start: 20050303, end: 20050303
  3. CYCLOPHOSPHAMIDE [Suspect]
     Indication: BREAST CANCER
     Dates: start: 20050303, end: 20050303
  4. NEXIUM [Concomitant]
     Dates: end: 20050310
  5. FALITHROM [Concomitant]
     Dosage: DOSE: 1 AT MO/TH, 2 AT TU/WE/FR/SA/SO
     Dates: end: 20050310
  6. SIMVABETA [Concomitant]
     Dates: end: 20050310

REACTIONS (4)
  - ARTHRALGIA [None]
  - FATIGUE [None]
  - HEADACHE [None]
  - LEUKOPENIA [None]
